FAERS Safety Report 5936757-8 (Version None)
Quarter: 2008Q4

REPORT INFORMATION
  Report Type: 
  Country: None (occurrence: None)
  Receive Date: 20081030
  Receipt Date: 20081028
  Transmission Date: 20090506
  Serious: Yes (Hospitalization, Other)
  Sender: FDA-Public Use
  Company Number: JP-GILEAD-2008-0017788

PATIENT
  Sex: Male

DRUGS (9)
  1. TRUVADA [Suspect]
     Indication: HIV INFECTION
     Route: 048
     Dates: start: 20071210
  2. NORVIR [Concomitant]
     Indication: HIV INFECTION
     Route: 048
     Dates: start: 20071210
  3. REYATAZ [Concomitant]
     Indication: HIV INFECTION
     Route: 048
     Dates: start: 20071210
  4. ETHAMBUTOL HCL [Concomitant]
     Dates: start: 20071108
  5. CRAVIT [Concomitant]
     Dates: start: 20071108
  6. CLARITHROMYCIN [Concomitant]
     Dates: start: 20071108
  7. BIOFERMIN [Concomitant]
     Dates: start: 20071130
  8. MUCOSTA [Concomitant]
     Dates: start: 20071215
  9. FOSCAVIR [Concomitant]
     Dates: start: 20071217, end: 20071230

REACTIONS (3)
  - CYTOMEGALOVIRUS CHORIORETINITIS [None]
  - IMMUNE RECONSTITUTION SYNDROME [None]
  - PLATELET COUNT DECREASED [None]
